FAERS Safety Report 7177596-2 (Version None)
Quarter: 2010Q4

REPORT INFORMATION
  Report Type: 
  Country: None (occurrence: None)
  Receive Date: 20101123
  Receipt Date: 20101005
  Transmission Date: 20110411
  Serious: No
  Sender: FDA-Public Use
  Company Number: 019898

PATIENT
  Sex: Male
  Weight: 99.7913 kg

DRUGS (3)
  1. CIMZIA [Suspect]
     Indication: CROHN'S DISEASE
     Dosage: (400 MG 1X/MONTH SUBCUTANEOUS)
     Route: 058
     Dates: start: 20100701
  2. PROTONIX [Concomitant]
  3. VITAMIN B-12 [Concomitant]

REACTIONS (4)
  - FATIGUE [None]
  - HAEMATINURIA [None]
  - NEPHROLITHIASIS [None]
  - PAIN [None]
